FAERS Safety Report 8198344-3 (Version None)
Quarter: 2012Q1

REPORT INFORMATION
  Report Type: 
  Country: None (occurrence: None)
  Receive Date: 20120309
  Receipt Date: 20120305
  Transmission Date: 20120608
  Serious: Yes (Other)
  Sender: FDA-Public Use
  Company Number: PHHY2012BR011631

PATIENT
  Sex: Female

DRUGS (7)
  1. GINKGO BILOBA [Concomitant]
     Indication: MEMORY IMPAIRMENT
     Dosage: 80 MG, QD
     Route: 048
  2. LOSARTAN POTASSIUM [Concomitant]
     Indication: HYPERTENSION
     Dosage: 50 MG, QD
     Route: 048
  3. EXELON [Suspect]
     Indication: DEMENTIA ALZHEIMER'S TYPE
     Dosage: 4.6 MG, (9MG/5CM2)  1 PATCH A DAY
     Route: 062
  4. CHLORTHALIDONE [Concomitant]
     Indication: HYPERTENSION
     Dosage: 50 MG, QD
     Route: 048
  5. ATORVASTATIN [Concomitant]
     Indication: BLOOD CHOLESTEROL INCREASED
     Dosage: 10 MG, QD
     Route: 048
  6. FLUOXETINE HCL [Concomitant]
     Indication: DEPRESSION
     Dosage: 20 MG, QD
     Route: 048
  7. CENTRUM [Concomitant]
     Dosage: 1 DF, QD
     Route: 048

REACTIONS (4)
  - URINARY TRACT INFECTION [None]
  - CEREBROVASCULAR ACCIDENT [None]
  - FATIGUE [None]
  - LOSS OF CONSCIOUSNESS [None]
